FAERS Safety Report 15626036 (Version 1)
Quarter: 2018Q4

REPORT INFORMATION
  Report Type: Spontaneous
  Country: ES (occurrence: ES)
  Receive Date: 20181116
  Receipt Date: 20181116
  Transmission Date: 20190205
  Serious: Yes (Other)
  Sender: FDA-Public Use
  Company Number: ES-MYLANLABS-2018M1084703

PATIENT
  Age: 3 Decade
  Sex: Female

DRUGS (4)
  1. CISPLATIN. [Suspect]
     Active Substance: CISPLATIN
     Dosage: FOR 2 CYCLES AT REDUCED DOSES
     Route: 065
  2. ETOPOSIDE. [Suspect]
     Active Substance: ETOPOSIDE
     Indication: LARYNGEAL CANCER STAGE IV
     Dosage: 100 MG/M2 DAYS 1, 2 AND 3 EVERY 21 DAYS FOR 3 CYCLES
     Route: 065
  3. ETOPOSIDE. [Suspect]
     Active Substance: ETOPOSIDE
     Dosage: FOR 2 CYCLES AT REDUCED DOSES
     Route: 065
  4. CISPLATIN. [Suspect]
     Active Substance: CISPLATIN
     Indication: LARYNGEAL CANCER STAGE IV
     Dosage: ON DAY 1 FOR 3 CYCLES
     Route: 065

REACTIONS (1)
  - Drug ineffective [Unknown]
